FAERS Safety Report 25846256 (Version 2)
Quarter: 2025Q4

REPORT INFORMATION
  Report Type: Spontaneous
  Country: US (occurrence: US)
  Receive Date: 20250925
  Receipt Date: 20251001
  Transmission Date: 20260118
  Serious: Yes (Other)
  Sender: SANOFI AVENTIS
  Company Number: US-SA-2025SA285199

PATIENT
  Age: 82 Year
  Sex: Male
  Weight: 72.27 kg

DRUGS (1)
  1. DUPIXENT [Suspect]
     Active Substance: DUPILUMAB
     Indication: Dermatitis atopic
     Dosage: 300 MG, QOW
     Route: 058
     Dates: start: 202506

REACTIONS (2)
  - Limb operation [Unknown]
  - Hypoacusis [Unknown]

NARRATIVE: CASE EVENT DATE: 20250101
